FAERS Safety Report 6400462-4 (Version None)
Quarter: 2009Q4

REPORT INFORMATION
  Report Type: 
  Country: None (occurrence: None)
  Receive Date: 20091007
  Receipt Date: 20091007
  Transmission Date: 20100525
  Serious: Yes (Life-Threatening)
  Sender: FDA-Public Use
  Company Number: None

PATIENT
  Age: 73 Year
  Sex: Male
  Weight: 73.4827 kg

DRUGS (1)
  1. SPORANOX [Suspect]
     Indication: TINEA PEDIS

REACTIONS (2)
  - HEPATIC FIBROSIS [None]
  - HEPATITIS CHOLESTATIC [None]
